FAERS Safety Report 7796087-9 (Version None)
Quarter: 2011Q4

REPORT INFORMATION
  Report Type: 
  Country: None (occurrence: None)
  Receive Date: 20111004
  Receipt Date: 20110919
  Transmission Date: 20120403
  Serious: Yes (Other)
  Sender: FDA-Public Use
  Company Number: JP-WATSON-2011-15636

PATIENT
  Age: 70 Year
  Sex: Female

DRUGS (3)
  1. FLUOROURACIL [Suspect]
     Indication: THYROID CANCER
     Dosage: 370 MG/M2 ( DAYS 1-5)
     Route: 065
  2. DOCETAXEL [Suspect]
     Indication: THYROID CANCER
     Dosage: 25 MG/M2 (DAY 1)
     Route: 042
  3. CISPLATIN [Suspect]
     Indication: THYROID CANCER
     Dosage: 10 MG/BODY (DAYS 1-5)

REACTIONS (3)
  - DIARRHOEA [None]
  - ORAL DISORDER [None]
  - BONE MARROW FAILURE [None]
